FAERS Safety Report 19036281 (Version 1)
Quarter: 2021Q1

REPORT INFORMATION
  Report Type: Report from Study
  Country: US (occurrence: US)
  Receive Date: 20210322
  Receipt Date: 20210322
  Transmission Date: 20210420
  Serious: Yes (Hospitalization, Other)
  Sender: FDA-Public Use
  Company Number: US-BAUSCH-BL-2020-030111

PATIENT
  Age: 69 Year
  Sex: Female

DRUGS (5)
  1. RELISTOR [Suspect]
     Active Substance: METHYLNALTREXONE BROMIDE
     Dosage: PHYSICIAN THEN HAD GIVEN SOME TABLETS
     Route: 048
     Dates: start: 2020, end: 2020
  2. RELISTOR [Suspect]
     Active Substance: METHYLNALTREXONE BROMIDE
     Indication: CONSTIPATION
     Dosage: ABOUT 2 YEARS AGO FROM DATE OF INITIAL REPORT
     Route: 048
  3. RELISTOR [Suspect]
     Active Substance: METHYLNALTREXONE BROMIDE
     Indication: CONSTIPATION
     Route: 058
  4. RELISTOR [Suspect]
     Active Substance: METHYLNALTREXONE BROMIDE
     Dosage: ABOUT 6 MONTHS AGO FROM DATE OF REPORT
     Route: 048
     Dates: start: 2020, end: 2020
  5. RELISTOR [Suspect]
     Active Substance: METHYLNALTREXONE BROMIDE
     Dosage: ABOUT 3 WEEKS AGO PRIOR TO DATE OF REPORT
     Route: 058
     Dates: start: 2020, end: 2020

REACTIONS (11)
  - Chest pain [Unknown]
  - Abdominal pain upper [Recovering/Resolving]
  - Cerebral ischaemia [Unknown]
  - Mental disorder [Unknown]
  - Drug ineffective [Unknown]
  - Therapy interrupted [Unknown]
  - Abdominal distension [Unknown]
  - Hypersensitivity [Unknown]
  - Memory impairment [Unknown]
  - Inability to afford medication [Unknown]
  - Feeling abnormal [Unknown]
